FAERS Safety Report 10283086 (Version 1)
Quarter: 2014Q3

REPORT INFORMATION
  Report Type: Spontaneous
  Country: US (occurrence: None)
  Receive Date: 20140702
  Receipt Date: 20140702
  Transmission Date: 20150326
  Serious: Yes (Hospitalization)
  Sender: FDA-Public Use
  Company Number: None

PATIENT
  Age: 38 Year
  Sex: Female
  Weight: 124.74 kg

DRUGS (6)
  1. METHYLDOPA 500 MG BID X 6 WKS, 500MG TID X6WKS [Suspect]
     Active Substance: METHYLDOPA
     Indication: HYPERTENSION
     Route: 048
     Dates: start: 20131104, end: 20140128
  2. CLARITHIN [Concomitant]
  3. MAKENA [Concomitant]
     Active Substance: HYDROXYPROGESTERONE CAPROATE
  4. FLUOXETINE [Concomitant]
     Active Substance: FLUOXETINE\FLUOXETINE HYDROCHLORIDE
  5. METHYLDOPA 500 MG BID X 6 WKS, 500MG TID X6WKS [Suspect]
     Active Substance: METHYLDOPA
     Indication: PREGNANCY
     Route: 048
     Dates: start: 20131104, end: 20140128
  6. FLONASE [Concomitant]
     Active Substance: FLUTICASONE PROPIONATE

REACTIONS (3)
  - Hepatic enzyme increased [None]
  - Drug-induced liver injury [None]
  - Jaundice [None]

NARRATIVE: CASE EVENT DATE: 20140228
